FAERS Safety Report 17693473 (Version 5)
Quarter: 2020Q2

REPORT INFORMATION
  Report Type: Spontaneous
  Country: FR (occurrence: FR)
  Receive Date: 20200422
  Receipt Date: 20200528
  Transmission Date: 20200714
  Serious: Yes (Hospitalization)
  Sender: FDA-Public Use
  Company Number: FR-OTSUKA-2020_010134

PATIENT
  Age: 33 Year
  Sex: Male

DRUGS (8)
  1. LEPTICUR [Concomitant]
     Active Substance: TROPATEPINE HYDROCHLORIDE
     Indication: PRODUCT USED FOR UNKNOWN INDICATION
     Dosage: UNK
     Route: 065
  2. HALOPERIDOL. [Suspect]
     Active Substance: HALOPERIDOL
     Indication: DEPRESSION
     Dosage: UNK
     Route: 065
  3. XANAX [Concomitant]
     Active Substance: ALPRAZOLAM
     Indication: PRODUCT USED FOR UNKNOWN INDICATION
     Dosage: UNK
     Route: 065
  4. RISPERIDONE. [Suspect]
     Active Substance: RISPERIDONE
     Indication: DEPRESSION
     Dosage: UNK
     Route: 065
  5. CLOPIXOL ACTION PROLONGEE [Suspect]
     Active Substance: ZUCLOPENTHIXOL ACETATE
     Dosage: UNK (1 DOSE IN 2 WEEKS)
     Route: 065
  6. CLOPIXOL ACTION PROLONGEE [Suspect]
     Active Substance: ZUCLOPENTHIXOL ACETATE
     Indication: DEPRESSION
     Dosage: UNK (1 DOSE IN 15 DAYS)
     Route: 030
  7. ARIPIPRAZOLE. [Suspect]
     Active Substance: ARIPIPRAZOLE
     Indication: DEPRESSION
     Dosage: UNK
     Route: 065
  8. VALIUM [Concomitant]
     Active Substance: DIAZEPAM
     Indication: PRODUCT USED FOR UNKNOWN INDICATION
     Dosage: UNK
     Route: 065

REACTIONS (17)
  - Weight increased [Not Recovered/Not Resolved]
  - Daydreaming [Not Recovered/Not Resolved]
  - Pain [Unknown]
  - Dry eye [Not Recovered/Not Resolved]
  - Visual impairment [Not Recovered/Not Resolved]
  - Excessive eye blinking [Unknown]
  - Asthenia [Not Recovered/Not Resolved]
  - Lethargy [Not Recovered/Not Resolved]
  - Anger [Not Recovered/Not Resolved]
  - Emotional distress [Not Recovered/Not Resolved]
  - Hypersomnia [Not Recovered/Not Resolved]
  - Fatigue [Unknown]
  - Product use in unapproved indication [Unknown]
  - Eye disorder [Unknown]
  - Amnesia [Not Recovered/Not Resolved]
  - Photopsia [Not Recovered/Not Resolved]
  - Aggression [Not Recovered/Not Resolved]
